FAERS Safety Report 9119016 (Version 3)
Quarter: 2013Q2

REPORT INFORMATION
  Report Type: Spontaneous
  Country: JP (occurrence: JP)
  Receive Date: 20130226
  Receipt Date: 20130415
  Transmission Date: 20140414
  Serious: Yes (Hospitalization)
  Sender: FDA-Public Use
  Company Number: PHHY2013JP018151

PATIENT
  Sex: Female
  Weight: 66 kg

DRUGS (5)
  1. DIOVAN [Suspect]
     Indication: HYPERTENSION
     Dosage: 40 MG, DAILY
     Route: 048
     Dates: start: 20050317, end: 20130324
  2. CONIEL [Concomitant]
     Dosage: 2 MG, UNK
     Route: 048
     Dates: start: 20050428
  3. CONIEL [Concomitant]
     Dosage: 4 MG, UNK
     Route: 048
  4. CONIEL [Concomitant]
     Dosage: 2 MG, UNK
  5. CONIEL [Concomitant]
     Dosage: 4 MG, UNK
     Route: 048

REACTIONS (4)
  - Interstitial lung disease [Recovering/Resolving]
  - Cough [Unknown]
  - Nasopharyngitis [Recovering/Resolving]
  - Incorrect dose administered [Unknown]
